FAERS Safety Report 17938627 (Version 1)
Quarter: 2020Q2

REPORT INFORMATION
  Report Type: Spontaneous
  Country: US (occurrence: US)
  Receive Date: 20200625
  Receipt Date: 20200625
  Transmission Date: 20200714
  Serious: Yes (Hospitalization)
  Sender: FDA-Public Use
  Company Number: US-OPTINOSE US, INC-2020OPT000482

PATIENT
  Age: 64 Year
  Sex: Female

DRUGS (2)
  1. XHANCE [Suspect]
     Active Substance: FLUTICASONE PROPIONATE
     Indication: MULTIPLE ALLERGIES
     Route: 045
     Dates: start: 201901
  2. NUCYNTA [Concomitant]
     Active Substance: TAPENTADOL HYDROCHLORIDE
     Indication: PRODUCT USED FOR UNKNOWN INDICATION
     Route: 065

REACTIONS (3)
  - Product dose omission [Unknown]
  - Product use in unapproved indication [Unknown]
  - Sphincter of Oddi dysfunction [Unknown]

NARRATIVE: CASE EVENT DATE: 201901
